FAERS Safety Report 20437562 (Version 1)
Quarter: 2022Q1

REPORT INFORMATION
  Report Type: Report from Study
  Country: FR (occurrence: FR)
  Receive Date: 20220207
  Receipt Date: 20220207
  Transmission Date: 20220423
  Serious: Yes (Life-Threatening, Other)
  Sender: FDA-Public Use
  Company Number: FR-BRISTOL-MYERS SQUIBB COMPANY-BMS-2022-015208

PATIENT
  Age: 66 Year
  Sex: Male

DRUGS (1)
  1. NIVOLUMAB [Suspect]
     Active Substance: NIVOLUMAB
     Indication: Squamous cell carcinoma of head and neck
     Dosage: 240 MILLIGRAM, EVERY 15 DAYS
     Route: 065
     Dates: start: 20210621

REACTIONS (4)
  - Sepsis [Not Recovered/Not Resolved]
  - Multiple organ dysfunction syndrome [Unknown]
  - Pneumonia escherichia [Unknown]
  - Off label use [Unknown]

NARRATIVE: CASE EVENT DATE: 20211207
